FAERS Safety Report 8549557-X (Version None)
Quarter: 2012Q3

REPORT INFORMATION
  Report Type: 
  Country: None (occurrence: None)
  Receive Date: 20120730
  Receipt Date: 20120725
  Transmission Date: 20120928
  Serious: Yes (Hospitalization, Other)
  Sender: FDA-Public Use
  Company Number: BE-PFIZER INC-2012148194

PATIENT
  Age: 53 Year
  Sex: Female
  Weight: 85 kg

DRUGS (3)
  1. LIPITOR [Suspect]
     Indication: HYPERCHOLESTEROLAEMIA
     Dosage: 5 MG, 1X/DAY
     Route: 048
     Dates: end: 20120113
  2. SOTALOL HCL [Concomitant]
     Dosage: UNK, 2X/DAY
     Route: 048
  3. ASPIRIN [Concomitant]
     Dosage: UNK, 1X/DAY
     Route: 048

REACTIONS (1)
  - MUSCLE RUPTURE [None]
